FAERS Safety Report 5761512-1 (Version None)
Quarter: 2008Q2

REPORT INFORMATION
  Report Type: 
  Country: None (occurrence: None)
  Receive Date: 20080606
  Receipt Date: 20080528
  Transmission Date: 20081010
  Serious: No
  Sender: FDA-Public Use
  Company Number: US-BOEHRINGER INGELHEIM GMBH, GERMANY-2008-BP-08312BP

PATIENT
  Sex: Male

DRUGS (6)
  1. FLOMAX [Suspect]
     Indication: POLLAKIURIA
     Route: 048
     Dates: start: 20080523, end: 20080523
  2. ACCUPRIL [Concomitant]
     Indication: HYPERTENSION
  3. HYDROCHLOROTHIAZIDE [Concomitant]
     Indication: HYPERTENSION
  4. CRESTOR [Concomitant]
     Indication: HYPERCHOLESTEROLAEMIA
  5. TRICOR [Concomitant]
     Indication: HYPERCHOLESTEROLAEMIA
  6. PROTONIX [Concomitant]
     Indication: BARRETT'S OESOPHAGUS

REACTIONS (4)
  - DIZZINESS [None]
  - MYDRIASIS [None]
  - PHOTOPHOBIA [None]
  - RESTLESSNESS [None]
